FAERS Safety Report 16733170 (Version 1)
Quarter: 2019Q3

REPORT INFORMATION
  Report Type: Spontaneous
  Country: IT (occurrence: IT)
  Receive Date: 20190823
  Receipt Date: 20190823
  Transmission Date: 20191005
  Serious: Yes (Other)
  Sender: FDA-Public Use
  Company Number: IT-009507513-1908ITA007372

PATIENT
  Age: 72 Year
  Sex: Male

DRUGS (1)
  1. KEYTRUDA [Suspect]
     Active Substance: PEMBROLIZUMAB
     Indication: LUNG ADENOCARCINOMA
     Dosage: 200 MILLIGRAM, CYCLICAL
     Route: 042
     Dates: start: 20190121

REACTIONS (1)
  - Hypertransaminasaemia [Unknown]

NARRATIVE: CASE EVENT DATE: 20190412
